FAERS Safety Report 5156334-9 (Version None)
Quarter: 2006Q4

REPORT INFORMATION
  Report Type: 
  Country: None (occurrence: None)
  Receive Date: 20061122
  Receipt Date: 20061114
  Transmission Date: 20070319
  Serious: Yes (Other)
  Sender: FDA-Public Use
  Company Number: JP-GLAXOSMITHKLINE-B0447141A

PATIENT
  Age: 74 Year
  Sex: Male
  Weight: 41 kg

DRUGS (11)
  1. MODACIN [Suspect]
     Indication: URINARY TRACT INFECTION
     Dosage: 1G TWICE PER DAY
     Route: 042
     Dates: start: 20061011, end: 20061018
  2. LACTEC-G [Concomitant]
     Dosage: 500ML PER DAY
     Route: 042
     Dates: start: 20061011, end: 20061016
  3. UNKNOWN MEDICATION [Concomitant]
     Route: 042
     Dates: start: 20061011, end: 20061016
  4. UNKNOWN MEDICATION [Concomitant]
     Dosage: 1000ML PER DAY
     Route: 042
     Dates: start: 20061011, end: 20061027
  5. CATABON [Concomitant]
     Route: 042
     Dates: start: 20061007, end: 20061016
  6. RADEN [Concomitant]
     Dosage: 150MG TWICE PER DAY
     Route: 048
  7. AMANTADINE HCL [Concomitant]
     Dosage: 150MG TWICE PER DAY
     Route: 048
  8. TICLOPIDINE HCL [Concomitant]
     Dosage: 100MG PER DAY
     Route: 048
  9. SAWATENE [Concomitant]
     Dosage: 250MG THREE TIMES PER DAY
     Route: 048
  10. UNKNOWN MEDICATION [Concomitant]
     Dosage: 15MG THREE TIMES PER DAY
     Route: 048
  11. BIOFERMIN [Concomitant]
     Route: 048

REACTIONS (2)
  - C-REACTIVE PROTEIN DECREASED [None]
  - LIVER FUNCTION TEST ABNORMAL [None]
